FAERS Safety Report 10026823 (Version 1)
Quarter: 2014Q1

REPORT INFORMATION
  Report Type: Spontaneous
  Country: RO (occurrence: RO)
  Receive Date: 20140321
  Receipt Date: 20140321
  Transmission Date: 20141002
  Serious: Yes (Disabling, Other)
  Sender: FDA-Public Use
  Company Number: RO-ROCHE-1368951

PATIENT
  Age: 33 Year
  Sex: Female
  Weight: 50 kg

DRUGS (6)
  1. XOLAIR [Suspect]
     Indication: ASTHMA
     Route: 058
     Dates: start: 20131220, end: 20140310
  2. XOLAIR [Suspect]
     Route: 058
     Dates: start: 20140310, end: 20140310
  3. SERETIDE [Concomitant]
     Route: 065
     Dates: start: 2000
  4. SINGULAIR [Concomitant]
     Route: 065
     Dates: start: 2000
  5. AERIUS [Concomitant]
     Route: 065
     Dates: start: 2000
  6. NASONEX [Concomitant]
     Route: 065
     Dates: start: 2000

REACTIONS (2)
  - Serum sickness [Recovered/Resolved]
  - Polyneuropathy [Unknown]
